FAERS Safety Report 13509948 (Version 1)
Quarter: 2017Q2

REPORT INFORMATION
  Report Type: Spontaneous
  Country: US (occurrence: US)
  Receive Date: 20170503
  Receipt Date: 20170503
  Transmission Date: 20170830
  Serious: No
  Sender: FDA-Public Use
  Company Number: US-SA-2017SA056208

PATIENT
  Age: 80 Year
  Sex: Female

DRUGS (25)
  1. ALIROCUMAB PREFILLED PEN [Concomitant]
     Active Substance: ALIROCUMAB
     Indication: HYPERLIPIDAEMIA
     Dates: start: 20170311
  2. CALCIUM CITRATE [Concomitant]
     Active Substance: CALCIUM CITRATE
  3. COENZYME Q10 [Concomitant]
     Active Substance: UBIDECARENONE
  4. LANSOPRAZOLE. [Concomitant]
     Active Substance: LANSOPRAZOLE
  5. ALOSETRON [Concomitant]
     Active Substance: ALOSETRON
  6. ACETAMINOPHEN W/HYDROCODONE [Concomitant]
     Active Substance: ACETAMINOPHEN\HYDROCODONE
  7. AZELASTINE [Concomitant]
     Active Substance: AZELASTINE
  8. DIPHENHYDRAMINE. [Concomitant]
     Active Substance: DIPHENHYDRAMINE
  9. VITAMIN D2 [Concomitant]
     Active Substance: ERGOCALCIFEROL
  10. ALENDRONATE SODIUM. [Concomitant]
     Active Substance: ALENDRONATE SODIUM
  11. BANOPHEN [Concomitant]
     Active Substance: DIPHENHYDRAMINE HYDROCHLORIDE
  12. LOTRONEX [Concomitant]
     Active Substance: ALOSETRON HYDROCHLORIDE
  13. NYSTOP [Concomitant]
     Active Substance: NYSTATIN
  14. PRALUENT [Suspect]
     Active Substance: ALIROCUMAB
     Indication: HYPERLIPIDAEMIA
     Route: 058
     Dates: start: 20170311
  15. SERTRALINE [Concomitant]
     Active Substance: SERTRALINE HYDROCHLORIDE
  16. CLOTRIMAZOLE/BETAMETHASONE [Concomitant]
  17. PREDNISONE. [Concomitant]
     Active Substance: PREDNISONE
  18. VENTOLIN HFA [Concomitant]
     Active Substance: ALBUTEROL SULFATE
  19. PRAVASTATIN. [Concomitant]
     Active Substance: PRAVASTATIN
  20. TOPROL XL [Concomitant]
     Active Substance: METOPROLOL SUCCINATE
  21. ESTRACE [Concomitant]
     Active Substance: ESTRADIOL
  22. FLORAJEN [Concomitant]
  23. MAGNESIUM [Concomitant]
     Active Substance: MAGNESIUM
  24. IPRATROPIUM BROMIDE. [Concomitant]
     Active Substance: IPRATROPIUM BROMIDE
  25. RANEXA [Concomitant]
     Active Substance: RANOLAZINE

REACTIONS (1)
  - Diarrhoea [Not Recovered/Not Resolved]

NARRATIVE: CASE EVENT DATE: 20170311
